FAERS Safety Report 17016840 (Version 1)
Quarter: 2019Q4

REPORT INFORMATION
  Report Type: Spontaneous
  Country: US (occurrence: US)
  Receive Date: 20191003
  Receipt Date: 20191003
  Transmission Date: 20200122
  Serious: Yes (Hospitalization, Disabling)
  Sender: FDA-Public Use
  Company Number: None

PATIENT
  Age: 59 Year
  Sex: Female
  Weight: 92.99 kg

DRUGS (1)
  1. NIGHT TRIMMER [UNSPECIFIED INGREDIENT] [Suspect]
     Active Substance: UNSPECIFIED INGREDIENT
     Indication: WEIGHT CONTROL
     Dosage: ?          QUANTITY:8 PILLS?
     Route: 048
     Dates: start: 1994

REACTIONS (6)
  - Arthralgia [None]
  - Arthropathy [None]
  - Musculoskeletal pain [None]
  - Feeling abnormal [None]
  - Exostosis [None]
  - Cervical spinal stenosis [None]

NARRATIVE: CASE EVENT DATE: 1998
